FAERS Safety Report 8802730 (Version 1)
Quarter: 2012Q4

REPORT INFORMATION
  Report Type: 
  Country: US (occurrence: US)
  Receive Date: 20120921
  Receipt Date: 20120921
  Transmission Date: 20130627
  Serious: Yes (Hospitalization, Other)
  Sender: FDA-Public Use
  Company Number: US-009507513-1105USA01168

PATIENT

DRUGS (15)
  1. FOSAMAX [Suspect]
     Indication: OSTEOPOROSIS
     Route: 048
     Dates: start: 1999, end: 2009
  2. FOSAMAX [Suspect]
     Indication: OSTEOPENIA
     Dosage: 70 mg, UNK
     Route: 048
     Dates: end: 20100108
  3. FOSAMAX [Suspect]
     Dosage: 70 mg, QW
     Route: 048
  4. FOSAMAX [Suspect]
     Dosage: 10 mg, 4 tablets wkly
     Route: 048
  5. VIACTIV SOFT CALCIUM CHEWS [Concomitant]
     Dosage: 1 qd
     Dates: start: 2003, end: 20110620
  6. CITRACAL [Concomitant]
     Dosage: 1 qd
     Dates: start: 2003, end: 20110620
  7. OMEGA-3 [Concomitant]
     Dosage: 1 qd
     Dates: start: 2003, end: 20110620
  8. OMEGA-3 MARINE TRIGLYCERIDES [Concomitant]
     Dosage: 1 qd
     Dates: start: 2003, end: 20110620
  9. VITAMIN D (UNSPECIFIED) [Concomitant]
     Dosage: 1 qd
     Dates: start: 2003, end: 20110120
  10. VITAMIN E [Concomitant]
     Dosage: 1 qd
     Dates: start: 2003, end: 20110620
  11. SELECTIVE ESTROGEN RECEPTOR MODULATOR (UNSPECIFIED) [Concomitant]
     Dates: start: 2007, end: 2007
  12. MK-9278 [Concomitant]
     Dosage: 1 qd
     Dates: start: 1980, end: 20110620
  13. FOSAMAX [Suspect]
     Dosage: 70 mg, QW
     Route: 048
     Dates: start: 20080323, end: 20100108
  14. FOSAMAX PLUS D [Suspect]
     Dosage: 70mg/2800
     Route: 048
     Dates: start: 20061018, end: 20070917
  15. EVISTA [Suspect]
     Indication: OSTEOPOROSIS
     Route: 048

REACTIONS (47)
  - Femur fracture [Recovered/Resolved]
  - Pyrexia [Unknown]
  - Diarrhoea [Unknown]
  - Hypertension [Not Recovered/Not Resolved]
  - Fracture [Unknown]
  - Intervertebral disc degeneration [Unknown]
  - Pseudomembranous colitis [Not Recovered/Not Resolved]
  - Decreased appetite [Unknown]
  - Weight decreased [Unknown]
  - Fatigue [Unknown]
  - Nocturia [Unknown]
  - Fall [Unknown]
  - Type V hyperlipidaemia [Unknown]
  - Iron deficiency anaemia [Unknown]
  - Sinusitis [Not Recovered/Not Resolved]
  - Sciatica [Unknown]
  - Mixed incontinence [Unknown]
  - Cerumen impaction [Unknown]
  - Pharyngitis [Unknown]
  - Tracheitis [Unknown]
  - Bone pain [Unknown]
  - Adverse drug reaction [Unknown]
  - Diarrhoea [Unknown]
  - Vomiting [Unknown]
  - Adverse drug reaction [Unknown]
  - Vulvovaginal candidiasis [Unknown]
  - Pneumonia [Unknown]
  - Interstitial lung disease [Unknown]
  - Pyrexia [Unknown]
  - Aortic arteriosclerosis [Unknown]
  - Bunion [Unknown]
  - Urinary incontinence [Unknown]
  - Diverticulitis [Unknown]
  - Fall [Unknown]
  - Leukocytosis [Unknown]
  - Constipation [Unknown]
  - Anaemia postoperative [Unknown]
  - Lung infiltration [Recovering/Resolving]
  - Musculoskeletal disorder [Unknown]
  - Clostridium difficile colitis [Unknown]
  - Urinary incontinence [Unknown]
  - Diabetes mellitus [Unknown]
  - Presbyopia [Unknown]
  - Hypermetropia [Unknown]
  - Astigmatism [Unknown]
  - Deafness neurosensory [Unknown]
  - Inappropriate schedule of drug administration [Unknown]
